FAERS Safety Report 13738991 (Version 1)
Quarter: 2017Q3

REPORT INFORMATION
  Report Type: Report from Study
  Country: US (occurrence: US)
  Receive Date: 20170710
  Receipt Date: 20170710
  Transmission Date: 20171127
  Serious: No
  Sender: FDA-Public Use
  Company Number: US-SAOL THERAPEUTICS-0701223185

PATIENT
  Age: 53 Year
  Sex: Male
  Weight: 151.93 kg

DRUGS (3)
  1. BACLOFEN. [Suspect]
     Active Substance: BACLOFEN
     Indication: PAIN
     Dosage: 14.53 ?G, \DAY
     Route: 037
  2. BUPIVICAINE [Suspect]
     Active Substance: BUPIVACAINE
     Dosage: 2.906 MG, \DAY
     Route: 037
  3. CLONIDINE. [Suspect]
     Active Substance: CLONIDINE
     Dosage: 8.718 ?G, \DAY
     Route: 037

REACTIONS (3)
  - Medical device site extravasation [Recovered/Resolved]
  - Fluctuance [Recovered/Resolved]
  - Implant site extravasation [Recovered/Resolved]

NARRATIVE: CASE EVENT DATE: 20160126
